FAERS Safety Report 6003952-1 (Version None)
Quarter: 2008Q4

REPORT INFORMATION
  Report Type: 
  Country: None (occurrence: None)
  Receive Date: 20081216
  Receipt Date: 20081210
  Transmission Date: 20090506
  Serious: Yes (Hospitalization)
  Sender: FDA-Public Use
  Company Number: GB-ROCHE-600450

PATIENT
  Sex: Female
  Weight: 127 kg

DRUGS (4)
  1. ORLISTAT [Suspect]
     Indication: OBESITY
     Route: 048
     Dates: start: 20080627
  2. DIXARIT [Concomitant]
     Route: 048
  3. FRUSEMIDE [Concomitant]
     Dosage: INDICATION: FLUID.
     Route: 048
  4. CEFRADINE [Concomitant]
     Route: 048

REACTIONS (1)
  - BASAL CELL CARCINOMA [None]
